FAERS Safety Report 8603707-5 (Version None)
Quarter: 2012Q3

REPORT INFORMATION
  Report Type: 
  Country: None (occurrence: None)
  Receive Date: 20120817
  Receipt Date: 20120808
  Transmission Date: 20120928
  Serious: Yes (Other)
  Sender: FDA-Public Use
  Company Number: US-ASTRAZENECA-2012SE56215

PATIENT
  Age: 45 Year
  Sex: Male

DRUGS (1)
  1. CAPRELSA [Suspect]
     Route: 048

REACTIONS (2)
  - PROCEDURAL COMPLICATION [None]
  - VOCAL CORD PARALYSIS [None]
